FAERS Safety Report 16533568 (Version 2)
Quarter: 2019Q3

REPORT INFORMATION
  Report Type: Report from Study
  Country: BR (occurrence: BR)
  Receive Date: 20190705
  Receipt Date: 20190806
  Transmission Date: 20191004
  Serious: Yes (Hospitalization, Other)
  Sender: FDA-Public Use
  Company Number: BR-BRISTOL-MYERS SQUIBB COMPANY-BMS-2019-064199

PATIENT
  Age: 67 Year
  Sex: Male

DRUGS (5)
  1. NIVOLUMAB [Suspect]
     Active Substance: NIVOLUMAB
     Indication: MALIGNANT MELANOMA
     Dosage: 1 MILLIGRAM/KILOGRAM, Q3WK
     Route: 042
  2. NIVOLUMAB [Suspect]
     Active Substance: NIVOLUMAB
     Indication: PRODUCT USED FOR UNKNOWN INDICATION
     Dosage: 3 MILLIGRAM/KILOGRAM, Q2WK
     Route: 042
  3. NIVOLUMAB [Suspect]
     Active Substance: NIVOLUMAB
     Indication: PRODUCT USED FOR UNKNOWN INDICATION
     Dosage: 480 MILLIGRAM, QMO
     Route: 042
  4. YERVOY [Suspect]
     Active Substance: IPILIMUMAB
     Indication: MALIGNANT MELANOMA
     Dosage: 3 MILLIGRAM/KILOGRAM, Q3WK
     Route: 042
  5. NIVOLUMAB [Suspect]
     Active Substance: NIVOLUMAB
     Indication: PRODUCT USED FOR UNKNOWN INDICATION
     Dosage: 3 MILLIGRAM/KILOGRAM, QMO
     Route: 042

REACTIONS (17)
  - Hypogonadism [Recovered/Resolved]
  - Decreased appetite [Unknown]
  - Hyperkalaemia [Recovered/Resolved]
  - Apathy [Unknown]
  - Urticaria [Recovered/Resolved]
  - Proteinuria [Recovered/Resolved]
  - Autoimmune thyroiditis [Recovered/Resolved]
  - Hypothyroidism [Recovered/Resolved]
  - Weight decreased [Unknown]
  - Glucocorticoid deficiency [Recovered/Resolved]
  - Rash maculo-papular [Recovered/Resolved]
  - Hypomagnesaemia [Recovered/Resolved]
  - Lethargy [Unknown]
  - Depression [Unknown]
  - Hepatitis [Recovered/Resolved]
  - General physical health deterioration [Recovered/Resolved]
  - Off label use [Unknown]
